FAERS Safety Report 16282315 (Version 1)
Quarter: 2019Q2

REPORT INFORMATION
  Report Type: Spontaneous
  Country: DE (occurrence: DE)
  Receive Date: 20190507
  Receipt Date: 20190507
  Transmission Date: 20190711
  Serious: Yes (Death, Other)
  Sender: FDA-Public Use
  Company Number: PHHY2019DE103545

PATIENT
  Age: 57 Year
  Sex: Female

DRUGS (2)
  1. RIBAVIRIN. [Suspect]
     Active Substance: RIBAVIRIN
     Indication: HEPATITIS E
  2. RIBAVIRIN. [Suspect]
     Active Substance: RIBAVIRIN
     Indication: PRIMARY IMMUNODEFICIENCY SYNDROME
     Dosage: 600 MG, QD
     Route: 065

REACTIONS (3)
  - Squamous cell carcinoma [Fatal]
  - Hepatitis E [Unknown]
  - Disease recurrence [Unknown]
